FAERS Safety Report 5218167-4 (Version None)
Quarter: 2007Q1

REPORT INFORMATION
  Report Type: 
  Country: None (occurrence: None)
  Receive Date: 20061130
  Receipt Date: 20060731
  Transmission Date: 20070707
  Serious: Yes (Hospitalization)
  Sender: FDA-Public Use
  Company Number: US200603000264

PATIENT
  Age: 32 Year
  Sex: Male
  Weight: 112 kg

DRUGS (16)
  1. ZYPREXA [Suspect]
     Dosage: SEE IMAGE
     Route: 048
     Dates: start: 20010622, end: 20021001
  2. ZYPREXA [Suspect]
     Dosage: SEE IMAGE
     Route: 048
     Dates: start: 20021001, end: 20030501
  3. ZYPREXA [Suspect]
     Dosage: SEE IMAGE
     Route: 048
     Dates: start: 20030501, end: 20030601
  4. ZYPREXA [Suspect]
     Dosage: SEE IMAGE
     Route: 048
     Dates: start: 20030601, end: 20040101
  5. ZYPREXA [Suspect]
     Dosage: SEE IMAGE
     Route: 048
     Dates: start: 20040101, end: 20041101
  6. ZYPREXA [Suspect]
     Dosage: SEE IMAGE
     Route: 048
     Dates: start: 20041101
  7. SEROQUEL [Concomitant]
  8. RISPERDAL /SWE/(RISPERIDONE) [Concomitant]
  9. WELLBUTRIN [Concomitant]
  10. PAXIL [Concomitant]
  11. TRIAVIL (AMITRIPTYLINE HYDROCHLORIDE, PERPHENAZINE) [Concomitant]
  12. TENORMIN /NEZ/ (ATENOLOL) [Concomitant]
  13. PREDNISOLONE [Concomitant]
  14. PREDNISONE TAB [Concomitant]
  15. MICROZIDE [Concomitant]
  16. DOLOPHINE (METHADONE HYDROCHLORIDE) AMPOULE [Concomitant]

REACTIONS (6)
  - DIABETES MELLITUS NON-INSULIN-DEPENDENT [None]
  - FATIGUE [None]
  - HYPERSENSITIVITY [None]
  - HYPERTENSION [None]
  - OBESITY [None]
  - WEIGHT INCREASED [None]
